FAERS Safety Report 25672530 (Version 1)
Quarter: 2025Q3

REPORT INFORMATION
  Report Type: Spontaneous
  Country: US (occurrence: US)
  Receive Date: 20250812
  Receipt Date: 20250812
  Transmission Date: 20251021
  Serious: No
  Sender: SANOFI AVENTIS
  Company Number: US-SA-2025SA230792

PATIENT
  Sex: Male
  Weight: 106.57 kg

DRUGS (1)
  1. FABRAZYME [Suspect]
     Active Substance: AGALSIDASE BETA
     Indication: Fabry^s disease
     Dosage: 125 (105 + 20 ) MG, QOW
     Route: 042
     Dates: start: 202201

REACTIONS (1)
  - Weight decreased [Unknown]
